FAERS Safety Report 4448713-X (Version None)
Quarter: 2004Q3

REPORT INFORMATION
  Report Type: 
  Country: None (occurrence: None)
  Receive Date: 20040909
  Receipt Date: 20040903
  Transmission Date: 20050211
  Serious: Yes (Hospitalization)
  Sender: FDA-Public Use
  Company Number: THQ2004A00815

PATIENT
  Age: 90 Year
  Sex: Male

DRUGS (5)
  1. LANSOPRAZOLE [Suspect]
     Indication: DYSPEPSIA
     Dosage: 30 MG; PER ORAL
     Route: 048
     Dates: start: 20040407, end: 20040809
  2. BISACODYL [Concomitant]
  3. THYROXINE (LEVOTHYROXINE SODIUM) [Concomitant]
  4. ATENOLOL [Concomitant]
  5. METFORMIN HCL [Concomitant]

REACTIONS (5)
  - COAGULOPATHY [None]
  - HEPATIC FUNCTION ABNORMAL [None]
  - LIVER FUNCTION TEST ABNORMAL [None]
  - RENAL IMPAIRMENT [None]
  - THROMBOCYTOPENIA [None]
